FAERS Safety Report 6220427-5 (Version None)
Quarter: 2009Q2

REPORT INFORMATION
  Report Type: 
  Country: None (occurrence: None)
  Receive Date: 20090605
  Receipt Date: 20090529
  Transmission Date: 20091009
  Serious: Yes (Hospitalization, Other)
  Sender: FDA-Public Use
  Company Number: US-WYE-H07827409

PATIENT
  Age: 53 Year
  Sex: Female

DRUGS (4)
  1. PREMPRO [Suspect]
     Indication: HORMONE REPLACEMENT THERAPY
  2. ESTRACE [Suspect]
  3. ESTRADIOL [Suspect]
  4. PREMARIN [Suspect]

REACTIONS (2)
  - NEUTROPENIA [None]
  - NON-HODGKIN'S LYMPHOMA STAGE III [None]
